FAERS Safety Report 6736156-5 (Version None)
Quarter: 2010Q2

REPORT INFORMATION
  Report Type: 
  Country: None (occurrence: None)
  Receive Date: 20100521
  Receipt Date: 20100512
  Transmission Date: 20101027
  Serious: Yes (Life-Threatening)
  Sender: FDA-Public Use
  Company Number: US-ROCHE-700532

PATIENT
  Sex: Female
  Weight: 94.3 kg

DRUGS (22)
  1. BONIVA [Suspect]
     Indication: OSTEOPOROSIS
     Dosage: ROUTE: INTRAVENOUS PUSH (IVP)
     Route: 042
     Dates: start: 20071220, end: 20100422
  2. METFORMIN HCL [Concomitant]
     Dosage: DRUG: METFORMIN ER
  3. LANTUS [Concomitant]
     Dosage: DOSE: 10 UNITS IN THE MORNING, DRUG: LANTUS SOLOSTAR
  4. ASPIRIN [Concomitant]
  5. LASIX [Concomitant]
  6. SPIRIVA [Concomitant]
     Route: 055
  7. VYTORIN [Concomitant]
     Dosage: DOSE: 10/40 MG DAILY
  8. ZOLOFT [Concomitant]
  9. XANAX [Concomitant]
  10. XOPENEX [Concomitant]
  11. SINGULAIR [Concomitant]
     Dosage: 10 MG AT NIGHT
  12. COENZYME Q10 [Concomitant]
     Dosage: DRUG: CO Q 10
  13. CINNAMON [Concomitant]
  14. OMEGA [Concomitant]
     Dosage: DRUG: OMEGA 3
  15. SYMBICORT [Concomitant]
     Dosage: DOSING REGIMEN: 160/4.5 2 PUFFS TWICE DAILY
  16. PREDNISONE [Concomitant]
  17. TOPROL-XL [Concomitant]
     Dosage: DRUG: TOPROL ER
  18. APIDRA [Concomitant]
     Dosage: PREMEAL COVERAGE, HIGH SCALE
  19. VISTARIL [Concomitant]
  20. OMEPRAZOLE [Concomitant]
  21. AVAPRO [Concomitant]
  22. BYETTA [Concomitant]

REACTIONS (2)
  - ACUTE RESPIRATORY FAILURE [None]
  - ANAPHYLACTIC REACTION [None]
